FAERS Safety Report 20867326 (Version 1)
Quarter: 2022Q2

REPORT INFORMATION
  Report Type: Spontaneous
  Country: US (occurrence: None)
  Receive Date: 20220524
  Receipt Date: 20220524
  Transmission Date: 20220721
  Serious: Yes (Death, Hospitalization)
  Sender: FDA-Public Use
  Company Number: None

PATIENT
  Age: 2 Year
  Sex: Female
  Weight: 12.6 kg

DRUGS (11)
  1. CYCLOPHOSPHAMIDE [Suspect]
     Active Substance: CYCLOPHOSPHAMIDE
     Dates: end: 20200607
  2. THIOTEPA [Suspect]
     Active Substance: THIOTEPA
     Dates: end: 20200604
  3. FILGRASTIM [Suspect]
     Active Substance: FILGRASTIM
     Dates: end: 20200621
  4. MESNA [Suspect]
     Active Substance: MESNA
     Dates: end: 20200607
  5. CISPLATIN [Suspect]
     Active Substance: CISPLATIN
     Dates: end: 20200404
  6. ZINECARD [Suspect]
     Active Substance: DEXRAZOXANE HYDROCHLORIDE
     Dates: end: 20200313
  7. DOXORUBICIN HYDROCHLORIDE [Suspect]
     Active Substance: DOXORUBICIN HYDROCHLORIDE
     Dates: end: 20200313
  8. ETOPOSIDE [Suspect]
     Active Substance: ETOPOSIDE
     Dates: end: 20200404
  9. TOPOTECAN [Suspect]
     Active Substance: TOPOTECAN HYDROCHLORIDE
     Dates: end: 20200203
  10. VINCRISTINE SULFATE [Suspect]
     Active Substance: VINCRISTINE SULFATE
     Dates: end: 20200312
  11. VINCRISTINE SULFATE [Suspect]
     Active Substance: VINCRISTINE SULFATE

REACTIONS (16)
  - Septic shock [None]
  - Herpes simplex viraemia [None]
  - Drug dependence [None]
  - Delirium [None]
  - Cytoreductive surgery [None]
  - Stem cell transplant [None]
  - Acute respiratory failure [None]
  - Respiratory failure [None]
  - Acute respiratory distress syndrome [None]
  - Renal cortical necrosis [None]
  - Withdrawal syndrome [None]
  - Pneumonitis [None]
  - Pulmonary haemorrhage [None]
  - Acute kidney injury [None]
  - Hypervolaemia [None]
  - Pleural effusion [None]

NARRATIVE: CASE EVENT DATE: 20200820
